FAERS Safety Report 7709357-7 (Version None)
Quarter: 2011Q3

REPORT INFORMATION
  Report Type: 
  Country: None (occurrence: None)
  Receive Date: 20110819
  Receipt Date: 20110805
  Transmission Date: 20111222
  Serious: Yes (Hospitalization)
  Sender: FDA-Public Use
  Company Number: 2011SP036796

PATIENT
  Age: 31 Year
  Sex: Female

DRUGS (1)
  1. NUVARING [Suspect]
     Indication: CONTRACEPTION
     Dosage: ;VAG
     Route: 067
     Dates: start: 20110201, end: 20110601

REACTIONS (4)
  - PREGNANCY WITH CONTRACEPTIVE DEVICE [None]
  - MATERNAL EXPOSURE DURING PREGNANCY [None]
  - ABORTION MISSED [None]
  - MIGRAINE [None]
